FAERS Safety Report 9231148 (Version 1)
Quarter: 2013Q2

REPORT INFORMATION
  Report Type: Spontaneous
  Country: US (occurrence: US)
  Receive Date: 20130415
  Receipt Date: 20130415
  Transmission Date: 20140414
  Serious: Yes (Death, Hospitalization, Other)
  Sender: FDA-Public Use
  Company Number: PHHY2013US035563

PATIENT
  Age: 89 Year
  Sex: Male

DRUGS (9)
  1. PREDNISONE [Suspect]
     Indication: POLYMYALGIA RHEUMATICA
     Dosage: 10 MG, 10 TO 20MG DAILY MAINTENANCE
  2. FUROSEMIDE [Concomitant]
     Dosage: 20 MG, QD
  3. AMIODARONE [Concomitant]
     Dosage: 200 MG, QD
  4. LEVOTHYROXINE [Concomitant]
     Dosage: 50 UG, QD
  5. ALENDRONATE [Concomitant]
     Dosage: 70 MG, QW
  6. ESZOPICLONE [Concomitant]
     Dosage: 1 MG, NIGHTLY
  7. LOSARTAN [Concomitant]
     Dosage: 50 MG, QD
  8. HYPNOTICS AND SEDATIVES [Concomitant]
     Indication: SLEEP DISORDER
  9. WARFARIN [Concomitant]

REACTIONS (16)
  - Death [Fatal]
  - Brain mass [Unknown]
  - General physical health deterioration [Unknown]
  - Confusional state [Unknown]
  - Gait disturbance [Unknown]
  - Balance disorder [Unknown]
  - Thought blocking [Unknown]
  - Aphasia [Unknown]
  - Dysstasia [Unknown]
  - Pneumonia [Unknown]
  - Pleural effusion [Unknown]
  - Asthenia [Unknown]
  - Fatigue [Unknown]
  - Acid fast bacilli infection [Unknown]
  - Nocardiosis [Unknown]
  - Urinary incontinence [Unknown]
